FAERS Safety Report 23165841 (Version 1)
Quarter: 2023Q4

REPORT INFORMATION
  Report Type: Spontaneous
  Country: US (occurrence: None)
  Receive Date: 20231108
  Receipt Date: 20231108
  Transmission Date: 20240109
  Serious: No
  Sender: FDA-Public Use
  Company Number: None

PATIENT
  Age: 36 Year
  Sex: Female
  Weight: 83.25 kg

DRUGS (5)
  1. ZOLMITRIPTAN [Suspect]
     Active Substance: ZOLMITRIPTAN
     Indication: Migraine
     Dosage: OTHER QUANTITY : 1 SPRAY(S);?OTHER FREQUENCY : ONCE AFTER 2 HOURS;?
     Route: 055
     Dates: start: 20231108
  2. CYMBALTA [Concomitant]
     Active Substance: DULOXETINE HYDROCHLORIDE
  3. ALBUTEROL [Concomitant]
     Active Substance: ALBUTEROL
  4. FIORICET [Concomitant]
     Active Substance: ACETAMINOPHEN\BUTALBITAL\CAFFEINE
  5. CLONAZEPAM [Concomitant]
     Active Substance: CLONAZEPAM

REACTIONS (4)
  - Paraesthesia [None]
  - Skin burning sensation [None]
  - Skin burning sensation [None]
  - Chest discomfort [None]

NARRATIVE: CASE EVENT DATE: 20231108
